FAERS Safety Report 15422404 (Version 1)
Quarter: 2018Q3

REPORT INFORMATION
  Report Type: Spontaneous
  Country: ES (occurrence: ES)
  Receive Date: 20180925
  Receipt Date: 20180925
  Transmission Date: 20181010
  Serious: Yes (Hospitalization, Other)
  Sender: FDA-Public Use
  Company Number: ES-SUN PHARMACEUTICAL INDUSTRIES LTD-2018RR-185192

PATIENT

DRUGS (11)
  1. VALPROATE SODIUM. [Concomitant]
     Active Substance: VALPROATE SODIUM
     Indication: PETIT MAL EPILEPSY
     Dosage: UNKNOWN DOSE ()
     Route: 065
  2. VIMPAT [Suspect]
     Active Substance: LACOSAMIDE
     Indication: PETIT MAL EPILEPSY
     Dosage: 200 MG/12 HR
     Route: 065
     Dates: start: 20140404
  3. PAROXETINE. [Concomitant]
     Active Substance: PAROXETINE
     Indication: DEPRESSION
     Dosage: UNKNOWN DOSE ()
     Route: 065
  4. CLONAZEPAM. [Concomitant]
     Active Substance: CLONAZEPAM
     Indication: PETIT MAL EPILEPSY
     Dosage: INCREASED TO FULL DOSES ()
     Route: 065
  5. CLONAZEPAM. [Concomitant]
     Active Substance: CLONAZEPAM
     Indication: FOCAL DYSCOGNITIVE SEIZURES
     Dosage: 2 MG/6 HR
     Route: 065
  6. VIMPAT [Suspect]
     Active Substance: LACOSAMIDE
     Indication: OFF LABEL USE
     Dosage: ()
     Route: 065
  7. LEVETIRACETAM. [Suspect]
     Active Substance: LEVETIRACETAM
     Indication: PETIT MAL EPILEPSY
     Dosage: INCREASED TO FULL DOSES ()
     Route: 065
  8. LEVETIRACETAM. [Suspect]
     Active Substance: LEVETIRACETAM
     Indication: OFF LABEL USE
     Dosage: ()
     Route: 065
  9. PROPOFOL. [Concomitant]
     Active Substance: PROPOFOL
     Indication: SEIZURE
     Dosage: UNKNOWN DOSE ()
     Route: 065
  10. ALPRAZOLAM. [Concomitant]
     Active Substance: ALPRAZOLAM
     Indication: DEPRESSION
     Dosage: UNKNOWN DOSE ()
     Route: 065
  11. LEVETIRACETAM. [Suspect]
     Active Substance: LEVETIRACETAM
     Indication: FOCAL DYSCOGNITIVE SEIZURES
     Dosage: 1500 MG/12 HR

REACTIONS (6)
  - Drug ineffective [Unknown]
  - Aphasia [Unknown]
  - Off label use [Unknown]
  - Atrioventricular block complete [Recovered/Resolved]
  - Status epilepticus [Recovering/Resolving]
  - Change in seizure presentation [Recovering/Resolving]

NARRATIVE: CASE EVENT DATE: 20140416
